FAERS Safety Report 9602456 (Version 1)
Quarter: 2013Q4

REPORT INFORMATION
  Report Type: Spontaneous
  Country: CA (occurrence: CA)
  Receive Date: 20131007
  Receipt Date: 20131007
  Transmission Date: 20140711
  Serious: Yes (Death)
  Sender: FDA-Public Use
  Company Number: CA-PFIZER INC-2013283751

PATIENT
  Age: 58 Year
  Sex: Male

DRUGS (3)
  1. INLYTA [Suspect]
     Indication: RENAL CELL CARCINOMA
     Dosage: 5 MG, CYCLIC 2X/DAY CYCLE 1,2
     Dates: start: 20121114
  2. INLYTA [Suspect]
     Dosage: 7 MG, CYCLIC 2X/DAY CYCLE 3,4,5,6,7
  3. INLYTA [Suspect]
     Dosage: 5 MG, CYCLIC 2X/DAY CYCLE 8

REACTIONS (1)
  - Death [Fatal]
